FAERS Safety Report 22621306 (Version 1)
Quarter: 2023Q2

REPORT INFORMATION
  Report Type: Spontaneous
  Country: CN (occurrence: CN)
  Receive Date: 20230620
  Receipt Date: 20230620
  Transmission Date: 20230722
  Serious: Yes (Other)
  Sender: FDA-Public Use
  Company Number: CN-PFIZER INC-PV202300106823

PATIENT
  Age: 5 Year
  Sex: Female
  Weight: 22.7 kg

DRUGS (7)
  1. MEDROL [Suspect]
     Active Substance: METHYLPREDNISOLONE
     Indication: Nephrotic syndrome
     Dosage: 16 MG, 1X/DAY
     Route: 048
     Dates: start: 20220404, end: 20230607
  2. MEDROL [Suspect]
     Active Substance: METHYLPREDNISOLONE
     Dosage: GRADUALLY REDUCED TO 2MG QOD
  3. MEDROL [Suspect]
     Active Substance: METHYLPREDNISOLONE
     Dosage: 20 MG, DAILY
     Dates: start: 20230428
  4. MEDROL [Suspect]
     Active Substance: METHYLPREDNISOLONE
     Dosage: 12 MG, DAILY
     Dates: start: 20230511
  5. MEDROL [Suspect]
     Active Substance: METHYLPREDNISOLONE
     Dosage: 16 MG, DAILY
     Route: 048
     Dates: start: 20230517
  6. MEDROL [Suspect]
     Active Substance: METHYLPREDNISOLONE
     Dosage: 12 MG, DAILY
     Route: 048
     Dates: start: 20230521
  7. MEDROL [Suspect]
     Active Substance: METHYLPREDNISOLONE
     Dosage: 8 MG, DAILY
     Dates: start: 20230601

REACTIONS (2)
  - Glucose urine present [Recovering/Resolving]
  - Blood glucose increased [Recovering/Resolving]

NARRATIVE: CASE EVENT DATE: 20230511
